FAERS Safety Report 20450393 (Version 3)
Quarter: 2022Q2

REPORT INFORMATION
  Report Type: Spontaneous
  Country: CZ (occurrence: CZ)
  Receive Date: 20220209
  Receipt Date: 20220404
  Transmission Date: 20220721
  Serious: Yes (Hospitalization, Other)
  Sender: FDA-Public Use
  Company Number: CZ-MYLANLABS-2022M1010280

PATIENT
  Age: 5 Year
  Sex: Male
  Weight: 18.5 kg

DRUGS (2)
  1. CLARITHROMYCIN [Suspect]
     Active Substance: CLARITHROMYCIN
     Indication: Tracheitis
     Dosage: UNK
  2. CLARITHROMYCIN [Suspect]
     Active Substance: CLARITHROMYCIN
     Dosage: 2 DOSAGE FORM, BIMONTHLY (MACROLIDE ANTIBIOTIC FOR SUSPECTED TRACHEITIS)
     Route: 065

REACTIONS (2)
  - Endocarditis [Unknown]
  - Streptococcal endocarditis [Recovered/Resolved]
